FAERS Safety Report 13718277 (Version 3)
Quarter: 2020Q3

REPORT INFORMATION
  Report Type: Spontaneous
  Country: US (occurrence: US)
  Receive Date: 20170705
  Receipt Date: 20200731
  Transmission Date: 20201102
  Serious: Yes (Death, Hospitalization)
  Sender: FDA-Public Use
  Company Number: US-JNJFOC-20170628870

PATIENT
  Age: 78 Year
  Sex: Male

DRUGS (2)
  1. XARELTO [Suspect]
     Active Substance: RIVAROXABAN
     Indication: DEEP VEIN THROMBOSIS
     Route: 048
     Dates: start: 20140301
  2. XARELTO [Suspect]
     Active Substance: RIVAROXABAN
     Dosage: VARIABLE DOSES OF 15 AND 20 MG
     Route: 048
     Dates: start: 20150210, end: 20150729

REACTIONS (2)
  - Contusion [Recovering/Resolving]
  - Oesophagitis haemorrhagic [Recovering/Resolving]

NARRATIVE: CASE EVENT DATE: 201507
